FAERS Safety Report 9587778 (Version 2)
Quarter: 2013Q4

REPORT INFORMATION
  Report Type: Report from Study
  Country: DE (occurrence: DE)
  Receive Date: 20131003
  Receipt Date: 20131017
  Transmission Date: 20140711
  Serious: Yes (Hospitalization)
  Sender: FDA-Public Use
  Company Number: DE-AMGEN-DEUNI2013069770

PATIENT
  Sex: Female

DRUGS (6)
  1. DENOSUMAB [Suspect]
     Indication: METASTASES TO BONE
     Dosage: 120 MG, Q4WK
     Route: 042
     Dates: start: 20121025
  2. NEBILET [Concomitant]
     Dosage: 5 MG, QD
     Route: 048
  3. L-THYROX [Concomitant]
     Dosage: UNK UNK, QD
     Route: 048
  4. SIMVASTATIN [Concomitant]
     Dosage: 40 MG, UNK
     Route: 048
  5. MCP [Concomitant]
     Dosage: UNK
     Route: 048
  6. DIAZEPAM [Concomitant]
     Dosage: 2 MG, UNK
     Route: 048

REACTIONS (1)
  - Ischaemia [Not Recovered/Not Resolved]
